FAERS Safety Report 6015570-X (Version None)
Quarter: 2008Q4

REPORT INFORMATION
  Report Type: 
  Country: None (occurrence: None)
  Receive Date: 20081222
  Receipt Date: 20081210
  Transmission Date: 20090506
  Serious: Yes (Other)
  Sender: FDA-Public Use
  Company Number: JP-PFIZER INC-2008154855

PATIENT

DRUGS (1)
  1. MEDROXYPROGESTERONE [Suspect]
     Indication: ENDOMETRIAL CANCER

REACTIONS (3)
  - DRUG EXPOSURE DURING PREGNANCY [None]
  - PLACENTA ACCRETA [None]
  - PLACENTAL DISORDER [None]
